FAERS Safety Report 8988386 (Version 1)
Quarter: 2012Q4

REPORT INFORMATION
  Report Type: Spontaneous
  Country: US (occurrence: None)
  Receive Date: 20121220
  Receipt Date: 20121220
  Transmission Date: 20130627
  Serious: Yes (Hospitalization)
  Sender: FDA-Public Use
  Company Number: None

PATIENT
  Sex: Male

DRUGS (1)
  1. AFINITOR [Suspect]
     Indication: KIDNEY CANCER
     Dosage: 10mg daily oral
     Route: 048
     Dates: start: 20120618, end: 20121124

REACTIONS (1)
  - Pneumonia [None]
